FAERS Safety Report 4806675-7 (Version None)
Quarter: 2005Q4

REPORT INFORMATION
  Report Type: 
  Country: None (occurrence: None)
  Receive Date: 20051021
  Receipt Date: 20051013
  Transmission Date: 20060501
  Serious: Yes (Other)
  Sender: FDA-Public Use
  Company Number: GB-ABBOTT-05P-167-0313629-00

PATIENT
  Age: 6 Year
  Sex: Male

DRUGS (7)
  1. EPILIM LIQUID [Suspect]
     Indication: CONVULSION
     Dates: end: 20030101
  2. EPILIM TABLETS [Suspect]
     Indication: CONVULSION
     Dates: start: 20030101
  3. EPILIM TABLETS [Suspect]
     Indication: MYOTONIA
  4. EPILIM TABLETS [Suspect]
  5. EPILIM TABLETS [Suspect]
  6. LAMOTRIGINE [Suspect]
     Indication: MYOTONIA
  7. TOPIRAMATE [Suspect]
     Indication: MYOTONIA

REACTIONS (5)
  - ABNORMAL BEHAVIOUR [None]
  - COORDINATION ABNORMAL [None]
  - DRUG INTERACTION [None]
  - MYOTONIA [None]
  - NIGHTMARE [None]
